FAERS Safety Report 7836228 (Version 18)
Quarter: 2014Q1

REPORT INFORMATION
  Report Type: Report from Study
  Country: CA (occurrence: CA)
  Receive Date: 20110302
  Receipt Date: 20140207
  Transmission Date: 20141002
  Serious: No
  Sender: FDA-Public Use
  Company Number: PHHY2011CA13831

PATIENT
  Age: 56 Year
  Sex: Female
  Weight: 61.68 kg

DRUGS (11)
  1. EXTAVIA [Suspect]
     Indication: RELAPSING-REMITTING MULTIPLE SCLEROSIS
     Dosage: 2 MIU, QOD
     Route: 058
     Dates: start: 20110217
  2. EXTAVIA [Suspect]
     Dosage: 8 MIU, QOD
     Route: 058
     Dates: start: 20110217
  3. EXTAVIA [Suspect]
     Dosage: 4 MIU, QOD
     Route: 058
  4. EXTAVIA [Suspect]
     Dosage: 8 MIU, QOD
     Route: 058
  5. EXTAVIA [Suspect]
     Dosage: 250 UG QOD
     Route: 058
  6. EXTAVIA [Suspect]
     Dosage: 8 MIU, QOD
     Route: 058
     Dates: end: 20140114
  7. GABAPENTIN [Concomitant]
     Dosage: 1500 MG (600 MG IN MORNING AND 900 MG BD), UNK
     Route: 048
  8. CALCIUM W/MAGNESIUM [Concomitant]
     Dosage: UNK UKN, UNK
  9. COD-LIVER OIL [Concomitant]
     Dosage: UNK UKN, UNK
  10. VITAMIN D3 [Concomitant]
     Dosage: 2000 IU, UNK
     Route: 048
  11. FAMPYRA [Concomitant]
     Dosage: 10 MG, Q12H

REACTIONS (31)
  - Injection site reaction [Recovered/Resolved]
  - Injection site mass [Recovered/Resolved]
  - Injection site erythema [Recovered/Resolved]
  - Chills [Recovered/Resolved]
  - Influenza like illness [Recovered/Resolved]
  - Balance disorder [Recovered/Resolved]
  - Tremor [Recovered/Resolved]
  - Cystitis [Recovered/Resolved]
  - Muscle spasticity [Recovered/Resolved]
  - Muscle spasms [Recovered/Resolved]
  - Hypokinesia [Unknown]
  - Limb injury [Unknown]
  - Fatigue [Unknown]
  - Piloerection [Unknown]
  - Dyspepsia [Recovered/Resolved]
  - Eructation [Unknown]
  - Erythema [Recovering/Resolving]
  - Cardiac disorder [Recovering/Resolving]
  - Dyskinesia [Recovering/Resolving]
  - Feeling cold [Recovering/Resolving]
  - Incorrect route of drug administration [Recovered/Resolved]
  - Wrong technique in drug usage process [Unknown]
  - Myalgia [Recovered/Resolved]
  - Musculoskeletal discomfort [Unknown]
  - Chest discomfort [Recovered/Resolved]
  - Dyspnoea [Recovered/Resolved]
  - Hypertension [Recovered/Resolved]
  - Injection site bruising [Recovering/Resolving]
  - Injection site pain [Unknown]
  - Injection site swelling [Recovered/Resolved]
  - Injection site haemorrhage [Unknown]
